FAERS Safety Report 16057995 (Version 5)
Quarter: 2019Q3

REPORT INFORMATION
  Report Type: Spontaneous
  Country: US (occurrence: US)
  Receive Date: 20190311
  Receipt Date: 20190906
  Transmission Date: 20191004
  Serious: Yes (Congenital Anomaly, Other)
  Sender: FDA-Public Use
  Company Number: PHEH2019US010630

PATIENT
  Sex: Male

DRUGS (2)
  1. ZOFRAN [Suspect]
     Active Substance: ONDANSETRON HYDROCHLORIDE
     Indication: FOETAL EXPOSURE DURING PREGNANCY
     Route: 064
  2. ZOFRAN [Suspect]
     Active Substance: ONDANSETRON HYDROCHLORIDE
     Indication: FOETAL EXPOSURE DURING PREGNANCY
     Dosage: MOTHER DOSE: 8 MG, UNK
     Route: 064

REACTIONS (17)
  - Neonatal respiratory distress [Unknown]
  - Abdominal pain upper [Unknown]
  - Right-to-left cardiac shunt [Unknown]
  - Fatigue [Unknown]
  - Cardiac septal defect [Unknown]
  - Left-to-right cardiac shunt [Unknown]
  - Vomiting [Unknown]
  - Foetal exposure during pregnancy [Unknown]
  - Gastrooesophageal reflux disease [Unknown]
  - Ventricular septal defect [Unknown]
  - Snoring [Unknown]
  - Haemangioma [Unknown]
  - Atrial septal defect [Unknown]
  - Right ventricular hypertrophy [Unknown]
  - Grunting [Unknown]
  - Nasal flaring [Unknown]
  - Pylorospasm [Unknown]
